FAERS Safety Report 8263644-5 (Version None)
Quarter: 2012Q2

REPORT INFORMATION
  Report Type: 
  Country: None (occurrence: None)
  Receive Date: 20120405
  Receipt Date: 20120331
  Transmission Date: 20120825
  Serious: Yes (Other)
  Sender: FDA-Public Use
  Company Number: US-ABBOTT-12P-163-0920679-00

PATIENT
  Sex: Female
  Weight: 104.42 kg

DRUGS (11)
  1. HUMIRA [Suspect]
     Dates: start: 20120103, end: 20120215
  2. PROMETHAZINE [Concomitant]
     Indication: NAUSEA
     Dosage: TAKEN WITH HYDROCODONE
  3. PRAVASTATIN SODIUM [Concomitant]
     Indication: PRODUCT USED FOR UNKNOWN INDICATION
  4. WELLBUTRIN [Concomitant]
     Indication: PRODUCT USED FOR UNKNOWN INDICATION
  5. HYDROCODONE BITARTRATE [Concomitant]
     Indication: PRODUCT USED FOR UNKNOWN INDICATION
     Dosage: 10/500MG
  6. HUMIRA [Suspect]
     Indication: ANKYLOSING SPONDYLITIS
     Dates: start: 20111017, end: 20111222
  7. LEVOTHYROXINE SODIUM [Concomitant]
     Indication: AUTOIMMUNE THYROIDITIS
  8. HUMIRA [Suspect]
     Dates: start: 20120303
  9. EXCEDRIN (MIGRAINE) [Concomitant]
     Indication: PRODUCT USED FOR UNKNOWN INDICATION
  10. BENICAR [Concomitant]
     Indication: BLOOD PRESSURE
     Dosage: 40/25 MCG: 1/2 TABLET IN AM AND PM
  11. ZOLPIDEM TARTRATE [Concomitant]
     Indication: SLEEP DISORDER THERAPY

REACTIONS (9)
  - POLYNEUROPATHY [None]
  - INJECTION SITE PAIN [None]
  - SINUS CONGESTION [None]
  - HYPOAESTHESIA [None]
  - HEADACHE [None]
  - INJECTION SITE HAEMORRHAGE [None]
  - ARNOLD-CHIARI MALFORMATION [None]
  - MUSCLE TIGHTNESS [None]
  - PARAESTHESIA [None]
